FAERS Safety Report 5616672-X (Version None)
Quarter: 2008Q1

REPORT INFORMATION
  Report Type: 
  Country: None (occurrence: None)
  Receive Date: 20080207
  Receipt Date: 20080205
  Transmission Date: 20080703
  Serious: Yes (Death, Other)
  Sender: FDA-Public Use
  Company Number: PHEH2007US15835

PATIENT
  Age: 87 Year
  Sex: Female

DRUGS (10)
  1. KEPPRA [Suspect]
     Indication: ORGASM ABNORMAL
     Dosage: 250 MG, BID
  2. KEPPRA [Suspect]
     Dosage: 500 MG, Q12H
  3. DILANTIN D.A. [Suspect]
     Indication: ORGASM ABNORMAL
  4. ASPIRIN [Concomitant]
     Indication: ATRIAL FIBRILLATION
     Dosage: 325 MG, UNK
  5. MAXZIDE [Suspect]
     Indication: HYPERTENSION
     Dosage: 37.5MG/25 MG, QD
     Route: 048
  6. HALDOL [Concomitant]
     Indication: HALLUCINATION
     Dosage: 0.5 MG, TID
     Route: 048
  7. CLARITIN [Concomitant]
     Indication: RHINITIS ALLERGIC
     Dosage: 10 MG, QD
     Route: 048
  8. PREMARIN [Concomitant]
     Indication: MENOPAUSAL SYMPTOMS
     Dosage: 0.62 MG, QD
     Route: 048
  9. LEVOTHROID [Concomitant]
     Indication: PRIMARY HYPOTHYROIDISM
     Dosage: 0.1 UNK, QD
     Route: 048
  10. EXELON [Suspect]
     Indication: DEMENTIA ALZHEIMER'S TYPE
     Dosage: 4.6MG/DAY, UNK
     Route: 062
     Dates: start: 20070901

REACTIONS (14)
  - ABNORMAL BEHAVIOUR [None]
  - BALANCE DISORDER [None]
  - BLOOD PRESSURE DECREASED [None]
  - CARDIOVASCULAR INSUFFICIENCY [None]
  - CEREBROVASCULAR ACCIDENT [None]
  - DEATH [None]
  - EXCORIATION [None]
  - FALL [None]
  - FEELINGS OF WORTHLESSNESS [None]
  - ORGASM ABNORMAL [None]
  - RASH [None]
  - RESPIRATORY RATE INCREASED [None]
  - SEDATION [None]
  - SEXUAL DYSFUNCTION [None]
